FAERS Safety Report 7536727-2 (Version None)
Quarter: 2011Q2

REPORT INFORMATION
  Report Type: 
  Country: None (occurrence: None)
  Receive Date: 20110609
  Receipt Date: 20110527
  Transmission Date: 20111010
  Serious: Yes (Hospitalization, Other)
  Sender: FDA-Public Use
  Company Number: B0724432A

PATIENT
  Sex: Female

DRUGS (2)
  1. LAPATINIB [Suspect]
     Dosage: 750MG PER DAY
     Dates: start: 20110506, end: 20110523
  2. XELODA [Concomitant]
     Dosage: 1300MG PER DAY
     Dates: start: 20110506, end: 20110525

REACTIONS (1)
  - MOUTH ULCERATION [None]
